FAERS Safety Report 8165324-3 (Version None)
Quarter: 2012Q1

REPORT INFORMATION
  Report Type: 
  Country: None (occurrence: None)
  Receive Date: 20120222
  Receipt Date: 20120222
  Transmission Date: 20120608
  Serious: Yes (Disabling)
  Sender: FDA-Public Use
  Company Number: None

PATIENT
  Sex: Male
  Weight: 75 kg

DRUGS (1)
  1. ZICAM NASAL SPRAY FOR COLDS ZICAM [Suspect]

REACTIONS (2)
  - PAIN [None]
  - ANOSMIA [None]
